FAERS Safety Report 18830410 (Version 1)
Quarter: 2021Q1

REPORT INFORMATION
  Report Type: Spontaneous
  Country: US (occurrence: US)
  Receive Date: 20210201
  Receipt Date: 20210201
  Transmission Date: 20210419
  Serious: No
  Sender: FDA-Public Use
  Company Number: US-ABBVIE-20K-163-3644351-00

PATIENT
  Age: 40 Year
  Sex: Female
  Weight: 70.76 kg

DRUGS (2)
  1. HUMIRA [Suspect]
     Active Substance: ADALIMUMAB
     Indication: CROHN^S DISEASE
     Route: 058
  2. INFLECTRA [Suspect]
     Active Substance: INFLIXIMAB-DYYB
     Indication: CROHN^S DISEASE
     Route: 065
     Dates: start: 20200804

REACTIONS (10)
  - Pruritus [Unknown]
  - Hot flush [Unknown]
  - Malaise [Unknown]
  - Drug ineffective [Unknown]
  - Urticaria [Unknown]
  - Oropharyngeal pain [Unknown]
  - Drug hypersensitivity [Not Recovered/Not Resolved]
  - Chills [Unknown]
  - Pyrexia [Unknown]
  - Vomiting [Unknown]

NARRATIVE: CASE EVENT DATE: 202008
